FAERS Safety Report 5236597-1 (Version None)
Quarter: 2007Q1

REPORT INFORMATION
  Report Type: 
  Country: None (occurrence: None)
  Receive Date: 20070208
  Receipt Date: 20070126
  Transmission Date: 20070707
  Serious: Yes (Hospitalization)
  Sender: FDA-Public Use
  Company Number: 232458

PATIENT
  Age: 68 Year
  Sex: Female
  Weight: 93.2 kg

DRUGS (14)
  1. EFALIZUMAB(EFALIZUMAB) PWDR + SOLVENT,INJECTION SOLN, 125MG [Suspect]
     Indication: PSORIASIS
     Dosage: 125 MG, 1/WEEK, SUBCUTANEOUS; 1.25ML, 1/WEEK,
     Route: 058
     Dates: start: 20050120, end: 20060620
  2. EFALIZUMAB(EFALIZUMAB) PWDR + SOLVENT,INJECTION SOLN, 125MG [Suspect]
     Indication: PSORIASIS
     Dosage: 125 MG, 1/WEEK, SUBCUTANEOUS; 1.25ML, 1/WEEK,
     Route: 058
     Dates: start: 20061205
  3. TOPICAL STEROIDS [Concomitant]
  4. NORVASC [Concomitant]
  5. DETROL LA (TOLTERODINE TARTRATE) [Concomitant]
  6. LASIX [Concomitant]
  7. ACCUPRIL [Concomitant]
  8. HYDROCHLOROTHIAZIDE [Concomitant]
  9. ACTOS [Concomitant]
  10. SINGULAIR [Concomitant]
  11. ZOCOR [Concomitant]
  12. TYLOX (ACETAMINOPHEN, OXYCODONE HYDROCHLORIDE) [Concomitant]
  13. METFORMIN HCL [Concomitant]
  14. FERROUS SULFATE TAB [Concomitant]

REACTIONS (19)
  - ASCITES [None]
  - CARDIOMEGALY [None]
  - CHEST X-RAY ABNORMAL [None]
  - CLOSTRIDIUM DIFFICILE COLITIS [None]
  - CLOSTRIDIUM DIFFICILE SEPSIS [None]
  - DIVERTICULUM [None]
  - HAEMATOCHEZIA [None]
  - HAEMORRHOIDS [None]
  - HEART RATE INCREASED [None]
  - HEPATITIS C [None]
  - HYPOTENSION [None]
  - LARGE INTESTINAL HAEMORRHAGE [None]
  - LUNG INFILTRATION [None]
  - PLEURAL EFFUSION [None]
  - PROTEIN URINE PRESENT [None]
  - PSEUDOPOLYP [None]
  - PULMONARY CONGESTION [None]
  - RENAL FAILURE ACUTE [None]
  - WHITE BLOOD CELLS STOOL POSITIVE [None]
